FAERS Safety Report 12079975 (Version 11)
Quarter: 2019Q2

REPORT INFORMATION
  Report Type: Spontaneous
  Country: BR (occurrence: BR)
  Receive Date: 20160216
  Receipt Date: 20190529
  Transmission Date: 20190711
  Serious: Yes (Other)
  Sender: FDA-Public Use
  Company Number: BR-JNJFOC-20160211114

PATIENT
  Age: 42 Year
  Sex: Female
  Weight: 60 kg

DRUGS (16)
  1. SIMPONI [Suspect]
     Active Substance: GOLIMUMAB
     Indication: RHEUMATOID ARTHRITIS
     Dosage: TWICE, ONE BY 15 DAYS AND THE OTHER BY 5 DAYS
     Route: 058
  2. CYCLOBENZAPRINE. [Concomitant]
     Active Substance: CYCLOBENZAPRINE
     Route: 065
  3. DECOCORT [Concomitant]
     Route: 065
  4. SIMPONI [Suspect]
     Active Substance: GOLIMUMAB
     Indication: RHEUMATOID ARTHRITIS
     Route: 058
     Dates: start: 20150901
  5. DEFLAZACORT [Concomitant]
     Active Substance: DEFLAZACORT
     Route: 065
  6. CIMICIFUGA RACEMOSA [Concomitant]
     Route: 065
  7. POLYACRYLIC ACID [Concomitant]
     Route: 065
  8. BETAMETHASONE. [Concomitant]
     Active Substance: BETAMETHASONE
     Route: 065
  9. SIMPONI [Suspect]
     Active Substance: GOLIMUMAB
     Indication: RHEUMATOID ARTHRITIS
     Route: 058
     Dates: start: 20151024
  10. METHOTREXATE. [Suspect]
     Active Substance: METHOTREXATE
     Indication: PRODUCT USED FOR UNKNOWN INDICATION
     Route: 065
     Dates: start: 201706
  11. NIMESULIDE [Concomitant]
     Active Substance: NIMESULIDE
     Route: 065
  12. FAMOTIDINE. [Concomitant]
     Active Substance: FAMOTIDINE
     Route: 065
  13. DIPROSONE [Concomitant]
     Active Substance: BETAMETHASONE DIPROPIONATE
     Indication: PAIN
     Route: 065
  14. FOLIC ACID. [Suspect]
     Active Substance: FOLIC ACID
     Indication: PRODUCT USED FOR UNKNOWN INDICATION
     Route: 065
     Dates: start: 201706
  15. DEPAKOTE [Concomitant]
     Active Substance: DIVALPROEX SODIUM
     Route: 065
  16. KETOPROFEN. [Concomitant]
     Active Substance: KETOPROFEN
     Route: 065

REACTIONS (21)
  - Dizziness [Unknown]
  - Weight increased [Unknown]
  - Headache [Unknown]
  - Therapeutic response decreased [Not Recovered/Not Resolved]
  - Muscular weakness [Unknown]
  - Underdose [Unknown]
  - Nasopharyngitis [Unknown]
  - Product availability issue [Unknown]
  - Rheumatoid arthritis [Not Recovered/Not Resolved]
  - Product storage error [Unknown]
  - Medication error [Unknown]
  - Accidental exposure to product [Unknown]
  - Nausea [Unknown]
  - Seasonal allergy [Unknown]
  - Inappropriate schedule of product administration [Unknown]
  - Blood pressure increased [Unknown]
  - Product use issue [Unknown]
  - Peripheral swelling [Unknown]
  - Product dose omission [Unknown]
  - Menopause [Unknown]
  - Off label use [Unknown]

NARRATIVE: CASE EVENT DATE: 20160122
